FAERS Safety Report 24083098 (Version 1)
Quarter: 2024Q3

REPORT INFORMATION
  Report Type: Spontaneous
  Country: FR (occurrence: FR)
  Receive Date: 20240712
  Receipt Date: 20240712
  Transmission Date: 20241016
  Serious: Yes (Other)
  Sender: RANBAXY
  Company Number: FR-SUN PHARMACEUTICAL INDUSTRIES LTD-2024RR-455948

PATIENT
  Age: 67 Year
  Sex: Male

DRUGS (1)
  1. ZOLPIDEM [Suspect]
     Active Substance: ZOLPIDEM TARTRATE
     Indication: Product used for unknown indication
     Dosage: AT LEAST 2 TABLESPOONS IN THE EVENING
     Route: 048
     Dates: start: 2024

REACTIONS (1)
  - Drug use disorder [Not Recovered/Not Resolved]
